FAERS Safety Report 20778763 (Version 2)
Quarter: 2022Q3

REPORT INFORMATION
  Report Type: Spontaneous
  Country: US (occurrence: US)
  Receive Date: 20220503
  Receipt Date: 20220721
  Transmission Date: 20221027
  Serious: No
  Sender: FDA-Public Use
  Company Number: US-PFIZER INC-202101507224

PATIENT
  Age: 67 Year
  Sex: Female
  Weight: 110.2 kg

DRUGS (1)
  1. PREGABALIN [Suspect]
     Active Substance: PREGABALIN
     Indication: Diabetic neuropathy
     Dosage: 75 MG, 2X/DAY(75MG TABLET TWICE A DAY BY MOUTH)
     Route: 048

REACTIONS (1)
  - Illness [Unknown]
